FAERS Safety Report 15943236 (Version 5)
Quarter: 2019Q3

REPORT INFORMATION
  Report Type: Spontaneous
  Country: US (occurrence: US)
  Receive Date: 20190210
  Receipt Date: 20190918
  Transmission Date: 20191004
  Serious: Yes (Hospitalization, Other)
  Sender: FDA-Public Use
  Company Number: US-ASTRAZENECA-2018SF33333

PATIENT
  Age: 21197 Day
  Sex: Female
  Weight: 49 kg

DRUGS (43)
  1. METOPROLOL. [Concomitant]
     Active Substance: METOPROLOL
  2. CLARITIN [Concomitant]
     Active Substance: LORATADINE
  3. OMEPRAZOLE. [Suspect]
     Active Substance: OMEPRAZOLE
     Indication: GASTROOESOPHAGEAL REFLUX DISEASE
     Dosage: GENERIC
     Route: 065
     Dates: start: 20120915, end: 20130928
  4. POTASSIUM CHLORIDE. [Concomitant]
     Active Substance: POTASSIUM CHLORIDE
  5. PLAVIX [Concomitant]
     Active Substance: CLOPIDOGREL BISULFATE
  6. DALIRESP [Concomitant]
     Active Substance: ROFLUMILAST
  7. LANTUS [Concomitant]
     Active Substance: INSULIN GLARGINE
  8. VICODIN [Concomitant]
     Active Substance: ACETAMINOPHEN\HYDROCODONE BITARTRATE
  9. FLOVENT [Concomitant]
     Active Substance: FLUTICASONE PROPIONATE
  10. TYLENOL [Concomitant]
     Active Substance: ACETAMINOPHEN
  11. ZOCOR [Concomitant]
     Active Substance: SIMVASTATIN
  12. OXYBUTYNIN. [Concomitant]
     Active Substance: OXYBUTYNIN CHLORIDE
  13. TOPROL XL [Concomitant]
     Active Substance: METOPROLOL SUCCINATE
  14. ALBUTEROL. [Concomitant]
     Active Substance: ALBUTEROL
  15. ATIVAN [Concomitant]
     Active Substance: LORAZEPAM
  16. LYRICA [Concomitant]
     Active Substance: PREGABALIN
  17. OXYCODONE [Concomitant]
     Active Substance: OXYCODONE
  18. NOVOLOG [Concomitant]
     Active Substance: INSULIN ASPART
  19. XANAX [Concomitant]
     Active Substance: ALPRAZOLAM
  20. PRAVASTATIN. [Concomitant]
     Active Substance: PRAVASTATIN
  21. BYSTOLIC [Concomitant]
     Active Substance: NEBIVOLOL HYDROCHLORIDE
  22. PRANDIN [Concomitant]
     Active Substance: REPAGLINIDE
  23. NEXIUM [Suspect]
     Active Substance: ESOMEPRAZOLE MAGNESIUM
     Indication: GASTROOESOPHAGEAL REFLUX DISEASE
     Route: 048
     Dates: start: 20070207, end: 20110628
  24. PRILOSEC OTC [Suspect]
     Active Substance: OMEPRAZOLE MAGNESIUM
     Indication: GASTROOESOPHAGEAL REFLUX DISEASE
     Route: 048
     Dates: start: 200702, end: 201704
  25. PRILOSEC OTC [Suspect]
     Active Substance: OMEPRAZOLE MAGNESIUM
     Indication: GASTROOESOPHAGEAL REFLUX DISEASE
     Route: 048
     Dates: start: 20110602, end: 20121216
  26. NEURONTIN [Concomitant]
     Active Substance: GABAPENTIN
  27. GLUCAGON. [Concomitant]
     Active Substance: GLUCAGON
  28. TOPAMAX [Concomitant]
     Active Substance: TOPIRAMATE
  29. NEXIUM [Suspect]
     Active Substance: ESOMEPRAZOLE MAGNESIUM
     Indication: GASTROOESOPHAGEAL REFLUX DISEASE
     Route: 048
     Dates: start: 200702, end: 201704
  30. NEXIUM [Suspect]
     Active Substance: ESOMEPRAZOLE MAGNESIUM
     Indication: GASTROOESOPHAGEAL REFLUX DISEASE
     Route: 048
     Dates: start: 20070817, end: 20110628
  31. LISINOPRIL. [Concomitant]
     Active Substance: LISINOPRIL
  32. PROZAC [Concomitant]
     Active Substance: FLUOXETINE HYDROCHLORIDE
  33. HYDROXYCHLOROQUINE [Concomitant]
     Active Substance: HYDROXYCHLOROQUINE
  34. PROTONIX [Suspect]
     Active Substance: PANTOPRAZOLE SODIUM
     Indication: GASTROOESOPHAGEAL REFLUX DISEASE
     Route: 065
     Dates: start: 20131110, end: 20161026
  35. PRILOSEC [Concomitant]
     Active Substance: OMEPRAZOLE MAGNESIUM
  36. FLEXERIL [Concomitant]
     Active Substance: CYCLOBENZAPRINE HYDROCHLORIDE
  37. FENOFIBRATE. [Concomitant]
     Active Substance: FENOFIBRATE
  38. PROTONIX [Suspect]
     Active Substance: PANTOPRAZOLE SODIUM
     Indication: GASTROOESOPHAGEAL REFLUX DISEASE
     Route: 065
     Dates: start: 20131108, end: 20170426
  39. SINGULAIR [Concomitant]
     Active Substance: MONTELUKAST SODIUM
  40. TEMAZEPAM. [Concomitant]
     Active Substance: TEMAZEPAM
  41. VITAMIN D [Concomitant]
     Active Substance: VITAMIN D NOS
  42. ALLEGRA [Concomitant]
     Active Substance: FEXOFENADINE HYDROCHLORIDE
  43. ADVAIR HFA [Concomitant]
     Active Substance: FLUTICASONE PROPIONATE\SALMETEROL XINAFOATE

REACTIONS (5)
  - End stage renal disease [Unknown]
  - Chronic kidney disease [Not Recovered/Not Resolved]
  - Renal injury [Unknown]
  - Nephrogenic anaemia [Unknown]
  - Acute kidney injury [Not Recovered/Not Resolved]

NARRATIVE: CASE EVENT DATE: 200702
